FAERS Safety Report 7901706-X (Version None)
Quarter: 2011Q4

REPORT INFORMATION
  Report Type: 
  Country: None (occurrence: None)
  Receive Date: 20111108
  Receipt Date: 20111025
  Transmission Date: 20120403
  Serious: Yes (Other)
  Sender: FDA-Public Use
  Company Number: US-ELI_LILLY_AND_COMPANY-US201111000658

PATIENT
  Sex: Female
  Weight: 56.689 kg

DRUGS (1)
  1. FORTEO [Suspect]
     Indication: OSTEOPOROSIS
     Dosage: 20 UG, QD
     Dates: start: 20110725

REACTIONS (5)
  - HEADACHE [None]
  - CONVULSION [None]
  - ASTHENIA [None]
  - TREMOR [None]
  - FATIGUE [None]
